FAERS Safety Report 15651660 (Version 5)
Quarter: 2018Q4

REPORT INFORMATION
  Report Type: Spontaneous
  Country: US (occurrence: US)
  Receive Date: 20181123
  Receipt Date: 20181231
  Transmission Date: 20190205
  Serious: Yes (Other)
  Sender: FDA-Public Use
  Company Number: US-PFIZER INC-2018477932

PATIENT
  Age: 57 Year
  Sex: Male
  Weight: 113 kg

DRUGS (10)
  1. GABAPENTIN. [Suspect]
     Active Substance: GABAPENTIN
     Indication: NEURALGIA
     Dosage: 800 MG, UNK
     Route: 048
  2. GABAPENTIN. [Suspect]
     Active Substance: GABAPENTIN
     Indication: BACK PAIN
     Dosage: 100 MG, 1X/DAY (QHS)
     Route: 048
  3. GABAPENTIN. [Suspect]
     Active Substance: GABAPENTIN
     Indication: PAIN
     Dosage: 400 MG, UNK
     Route: 048
  4. NEURONTIN [Suspect]
     Active Substance: GABAPENTIN
     Indication: NEURALGIA
     Dosage: 800 MG, 4X/DAY
     Route: 048
     Dates: start: 20141113
  5. GABAPENTIN. [Suspect]
     Active Substance: GABAPENTIN
     Dosage: 1600 MG, 2X/DAY(2 WHITE TABLETS BY MOUTH IN THE MORNING, 2 WHITE TABLETS BY MOUTH AT NIGHT)
     Route: 048
     Dates: start: 2011
  6. GABAPENTIN. [Suspect]
     Active Substance: GABAPENTIN
     Dosage: 800 MG, 3X/DAY
     Route: 048
     Dates: start: 20140625
  7. GABAPENTIN. [Suspect]
     Active Substance: GABAPENTIN
     Dosage: 800 MG, 4X/DAY
     Route: 048
     Dates: start: 20141113
  8. NEURONTIN [Suspect]
     Active Substance: GABAPENTIN
     Indication: PAIN IN EXTREMITY
     Dosage: 100 MG, 1X/DAY (QHS)
     Route: 048
     Dates: start: 20120326
  9. NEURONTIN [Suspect]
     Active Substance: GABAPENTIN
     Indication: CARDIAC ARREST
     Dosage: 800 MG, 3X/DAY
     Route: 048
     Dates: start: 20140625
  10. GABAPENTIN. [Suspect]
     Active Substance: GABAPENTIN
     Indication: PAIN IN EXTREMITY
     Dosage: 200 MG, UNK
     Route: 048

REACTIONS (13)
  - Tooth loss [Not Recovered/Not Resolved]
  - Insomnia [Unknown]
  - Dental caries [Not Recovered/Not Resolved]
  - Gingival bleeding [Unknown]
  - Nerve injury [Unknown]
  - Nutritional condition abnormal [Unknown]
  - Drug ineffective for unapproved indication [Unknown]
  - Overdose [Unknown]
  - Cardiac disorder [Unknown]
  - Infection [Unknown]
  - Pain [Unknown]
  - Eating disorder [Not Recovered/Not Resolved]
  - Weight decreased [Not Recovered/Not Resolved]

NARRATIVE: CASE EVENT DATE: 2011
